FAERS Safety Report 21745887 (Version 1)
Quarter: 2022Q4

REPORT INFORMATION
  Report Type: Report from Study
  Country: FR (occurrence: FR)
  Receive Date: 20221219
  Receipt Date: 20221219
  Transmission Date: 20230112
  Serious: Yes (Other)
  Sender: FDA-Public Use
  Company Number: FR-ADDMEDICA-2022000104

PATIENT
  Age: 46 Year
  Sex: Female

DRUGS (4)
  1. SIKLOS [Suspect]
     Active Substance: HYDROXYUREA
     Indication: Cerebrovascular accident
     Route: 048
     Dates: start: 20130916, end: 20140421
  2. SIKLOS [Suspect]
     Active Substance: HYDROXYUREA
     Indication: Cerebrovascular accident
     Route: 048
     Dates: start: 20140422
  3. SIKLOS [Suspect]
     Active Substance: HYDROXYUREA
     Indication: Cerebrovascular accident
     Route: 048
  4. SIKLOS [Suspect]
     Active Substance: HYDROXYUREA
     Indication: Cerebrovascular accident
     Route: 048
     Dates: end: 202112

REACTIONS (1)
  - Type 2 diabetes mellitus [Not Recovered/Not Resolved]

NARRATIVE: CASE EVENT DATE: 20190115
